FAERS Safety Report 7920474-9 (Version None)
Quarter: 2011Q4

REPORT INFORMATION
  Report Type: 
  Country: None (occurrence: None)
  Receive Date: 20111117
  Receipt Date: 20111109
  Transmission Date: 20120403
  Serious: Yes (Other)
  Sender: FDA-Public Use
  Company Number: PHHY2011ES88047

PATIENT
  Sex: Female

DRUGS (2)
  1. AFINITOR [Suspect]
     Indication: NEUROENDOCRINE TUMOUR
     Route: 048
  2. AFINITOR [Suspect]
     Dosage: UNK
     Route: 048

REACTIONS (2)
  - HYPOGLYCAEMIA [None]
  - SYNCOPE [None]
